FAERS Safety Report 5620416-5 (Version None)
Quarter: 2008Q1

REPORT INFORMATION
  Report Type: 
  Country: None (occurrence: None)
  Receive Date: 20080208
  Receipt Date: 20080129
  Transmission Date: 20080703
  Serious: Yes (Hospitalization)
  Sender: FDA-Public Use
  Company Number: US-ELI_LILLY_AND_COMPANY-US200801006234

PATIENT
  Sex: Male
  Weight: 123.36 kg

DRUGS (7)
  1. BYETTA [Suspect]
     Dosage: 5 UG, 2/D
     Route: 058
     Dates: start: 20060101, end: 20070101
  2. BYETTA [Suspect]
     Dosage: 10 UG, 2/D
     Route: 058
     Dates: start: 20070101, end: 20070101
  3. BYETTA [Suspect]
     Dosage: 5 UG, 2/D
     Route: 058
     Dates: start: 20070101, end: 20080101
  4. BYETTA [Suspect]
     Dosage: 5 UG, 2/D
     Route: 058
     Dates: start: 20080101
  5. METFORMIN HCL [Concomitant]
     Dosage: 1000 MG, 2/D
  6. VYTORIN [Concomitant]
     Indication: BLOOD CHOLESTEROL INCREASED
     Dosage: 40 MG, DAILY (1/D)
  7. ANTIHYPERTENSIVES [Concomitant]
     Indication: HYPERTENSION

REACTIONS (5)
  - ABDOMINAL DISTENSION [None]
  - ARTHROPATHY [None]
  - DECREASED APPETITE [None]
  - NAUSEA [None]
  - WEIGHT DECREASED [None]
